FAERS Safety Report 24189598 (Version 1)
Quarter: 2024Q3

REPORT INFORMATION
  Report Type: Spontaneous
  Country: US (occurrence: US)
  Receive Date: 20240808
  Receipt Date: 20240808
  Transmission Date: 20241017
  Serious: No
  Sender: VIFOR
  Company Number: US-Vifor (International) Inc.-VIT-2024-06280

PATIENT
  Sex: Male

DRUGS (1)
  1. VELTASSA [Suspect]
     Active Substance: PATIROMER
     Indication: Product used for unknown indication
     Dosage: CONSUMER DOES NOT TAKE VELTASSA DAILY AS PRESCRIBED

REACTIONS (3)
  - Product physical issue [Unknown]
  - Treatment noncompliance [Unknown]
  - Product solubility abnormal [Unknown]
